FAERS Safety Report 17038564 (Version 2)
Quarter: 2019Q4

REPORT INFORMATION
  Report Type: Report from Study
  Country: None (occurrence: US)
  Receive Date: 20191115
  Receipt Date: 20191126
  Transmission Date: 20200122
  Serious: Yes (Other)
  Sender: FDA-Public Use
  Company Number: US-ABBVIE-19P-163-3001132-00

PATIENT
  Sex: Female

DRUGS (1)
  1. SKYRIZI [Suspect]
     Active Substance: RISANKIZUMAB-RZAA
     Indication: PSORIASIS
     Route: 058
     Dates: start: 201910, end: 201910

REACTIONS (5)
  - Ovarian cyst [Not Recovered/Not Resolved]
  - Female reproductive tract disorder [Unknown]
  - Menorrhagia [Unknown]
  - Endometriosis [Unknown]
  - Ovarian cancer [Unknown]
